FAERS Safety Report 9604145 (Version 1)
Quarter: 2013Q4

REPORT INFORMATION
  Report Type: Spontaneous
  Country: GB (occurrence: GB)
  Receive Date: 20131008
  Receipt Date: 20131008
  Transmission Date: 20140711
  Serious: Yes (Life-Threatening)
  Sender: FDA-Public Use
  Company Number: GB-ACCORD-019685

PATIENT
  Age: 75 Year
  Sex: Female
  Weight: 63.5 kg

DRUGS (2)
  1. METOCHLOPRAMIDE [Concomitant]
  2. PACLITAXEL [Suspect]
     Indication: CHEMOTHERAPY
     Route: 042
     Dates: start: 20130912, end: 20130912

REACTIONS (3)
  - Unresponsive to stimuli [Recovered/Resolved]
  - Erythema [Unknown]
  - Swelling face [Unknown]
